FAERS Safety Report 20379563 (Version 1)
Quarter: 2022Q1

REPORT INFORMATION
  Report Type: Spontaneous
  Country: FR (occurrence: None)
  Receive Date: 20220126
  Receipt Date: 20220126
  Transmission Date: 20220423
  Serious: Yes (Other)
  Sender: FDA-Public Use
  Company Number: FR-ROCHE-3011402

PATIENT
  Age: 39 Year
  Sex: Female

DRUGS (2)
  1. RIVOTRIL [Suspect]
     Active Substance: CLONAZEPAM
     Indication: Sleep disorder
     Dosage: DOSE: 5 DROPS
     Route: 048
  2. RIVOTRIL [Suspect]
     Active Substance: CLONAZEPAM
     Indication: Facial paralysis
     Dosage: TOTAL DOSE: 500 DROP
     Route: 048
     Dates: start: 20211230, end: 20211230

REACTIONS (18)
  - Sick leave [Not Recovered/Not Resolved]
  - Hypersomnia [Recovered/Resolved]
  - Malaise [Recovered/Resolved]
  - Dizziness [Recovered/Resolved]
  - Amnesia [Recovered/Resolved]
  - Asthenia [Recovered/Resolved]
  - Incoherent [Recovered/Resolved]
  - Impaired driving ability [Recovered/Resolved]
  - Haemoptysis [Unknown]
  - Somnolence [Recovered/Resolved]
  - Decreased appetite [Recovered/Resolved]
  - Thirst decreased [Recovered/Resolved]
  - Confusional state [Recovered/Resolved]
  - Off label use [Unknown]
  - Intentional overdose [Unknown]
  - Intentional product misuse [Unknown]
  - Emergency care [Recovered/Resolved]
  - Psychosocial support [Not Recovered/Not Resolved]

NARRATIVE: CASE EVENT DATE: 20211230
